FAERS Safety Report 9409641 (Version 1)
Quarter: 2013Q3

REPORT INFORMATION
  Report Type: Report from Study
  Country: VE (occurrence: VE)
  Receive Date: 20130719
  Receipt Date: 20130719
  Transmission Date: 20140515
  Serious: Yes (Other)
  Sender: FDA-Public Use
  Company Number: PHHY2013VE056165

PATIENT
  Age: 65 Year
  Sex: Female

DRUGS (2)
  1. ACLASTA [Suspect]
     Indication: OSTEOPOROSIS
     Dosage: 5 MG, ANNUALY
     Route: 042
     Dates: start: 2010
  2. ACLASTA [Suspect]
     Dosage: 5 MG, ANNUALY
     Route: 042
     Dates: start: 20130217

REACTIONS (5)
  - Hyperkeratosis [Recovering/Resolving]
  - Haematoma [Recovered/Resolved]
  - Pigmentation disorder [Recovering/Resolving]
  - Photosensitivity reaction [Recovering/Resolving]
  - Pruritus [Recovered/Resolved]
